FAERS Safety Report 21440231 (Version 1)
Quarter: 2022Q4

REPORT INFORMATION
  Report Type: Spontaneous
  Country: US (occurrence: US)
  Receive Date: 20221011
  Receipt Date: 20221011
  Transmission Date: 20230113
  Serious: No
  Sender: FDA-Public Use
  Company Number: US-AMNEAL PHARMACEUTICALS-2021-AMRX-05369

PATIENT
  Age: 31 Year
  Sex: Female

DRUGS (1)
  1. LIORESAL [Suspect]
     Active Substance: BACLOFEN
     Indication: Muscle spasticity
     Dosage: 263.3 ?G, \DAY
     Route: 037

REACTIONS (4)
  - Paraesthesia [Unknown]
  - Hypoaesthesia [Unknown]
  - Muscle spasticity [Unknown]
  - Device failure [Recovered/Resolved]

NARRATIVE: CASE EVENT DATE: 20210823
